FAERS Safety Report 9974066 (Version 1)
Quarter: 2014Q1

REPORT INFORMATION
  Report Type: Spontaneous
  Country: US (occurrence: US)
  Receive Date: 20140306
  Receipt Date: 20140306
  Transmission Date: 20141002
  Serious: No
  Sender: FDA-Public Use
  Company Number: US-ABBVIE-13P-163-1157888-00

PATIENT
  Sex: Female
  Weight: 65.83 kg

DRUGS (6)
  1. HUMIRA [Suspect]
     Indication: RHEUMATOID ARTHRITIS
  2. UNNAMED MEDICATION [Concomitant]
     Indication: DEPRESSION
  3. UNNAMED MEDICATION [Concomitant]
     Indication: VITREOUS FLOATERS
  4. UNNAMED MEDICATION [Concomitant]
     Indication: ARTHRALGIA
  5. ALEVE [Concomitant]
     Indication: ARTHRALGIA
  6. UNNAMED MEDICATION [Concomitant]
     Indication: ANXIETY

REACTIONS (3)
  - Inappropriate schedule of drug administration [Not Recovered/Not Resolved]
  - Injection site discomfort [Not Recovered/Not Resolved]
  - Injection site erythema [Not Recovered/Not Resolved]
